FAERS Safety Report 14605224 (Version 1)
Quarter: 2018Q1

REPORT INFORMATION
  Report Type: Report from Study
  Country: US (occurrence: MX)
  Receive Date: 20180306
  Receipt Date: 20180306
  Transmission Date: 20180509
  Serious: Yes (Other)
  Sender: FDA-Public Use
  Company Number: US-SUNOVION-2018SUN000862

PATIENT
  Sex: Male

DRUGS (5)
  1. NORVASC [Concomitant]
     Active Substance: AMLODIPINE BESYLATE
     Dosage: UNK
     Dates: start: 2010
  2. MIFLONIDE [Suspect]
     Active Substance: BUDESONIDE
     Dosage: 3 DF, QD
     Route: 055
     Dates: start: 2014
  3. ASPIRIN. [Concomitant]
     Active Substance: ASPIRIN
     Dosage: UNK
     Dates: start: 2010
  4. INDACATEROL [Suspect]
     Active Substance: INDACATEROL
     Indication: EMPHYSEMA
     Dosage: 150 ?G, QD
     Route: 055
     Dates: start: 2014
  5. MIFLONIDE [Suspect]
     Active Substance: BUDESONIDE
     Indication: PRODUCTIVE COUGH
     Dosage: 2 DF, QD
     Route: 055

REACTIONS (2)
  - Myocardial infarction [Recovered/Resolved with Sequelae]
  - Inflammation [Unknown]

NARRATIVE: CASE EVENT DATE: 2016
